FAERS Safety Report 23548129 (Version 1)
Quarter: 2024Q1

REPORT INFORMATION
  Report Type: Spontaneous
  Country: KR (occurrence: KR)
  Receive Date: 20240221
  Receipt Date: 20240221
  Transmission Date: 20240409
  Serious: Yes (Hospitalization)
  Sender: FDA-Public Use
  Company Number: None

PATIENT
  Age: 56 Year
  Sex: Male

DRUGS (12)
  1. ZALTRAP [Suspect]
     Active Substance: ZIV-AFLIBERCEPT
     Indication: Colorectal cancer
     Dosage: 220 MG, QD
     Route: 065
     Dates: start: 20210409, end: 20210409
  2. ZALTRAP [Suspect]
     Active Substance: ZIV-AFLIBERCEPT
     Dosage: 220 MG, QD
     Route: 065
     Dates: start: 20210430, end: 20210430
  3. FLUOROURACIL [Suspect]
     Active Substance: FLUOROURACIL
     Indication: Colorectal cancer
     Dosage: 624 MG
     Dates: start: 20210430, end: 20210430
  4. FLUOROURACIL [Suspect]
     Active Substance: FLUOROURACIL
     Dosage: 3744 MG
     Dates: start: 20210502, end: 20210502
  5. LEUCOVORIN CALCIUM [Suspect]
     Active Substance: LEUCOVORIN CALCIUM
     Indication: Colorectal cancer
     Dosage: 624 MG
     Dates: start: 20210409, end: 20210409
  6. LEUCOVORIN CALCIUM [Suspect]
     Active Substance: LEUCOVORIN CALCIUM
     Dosage: 624 MG
     Dates: start: 20210430, end: 20210430
  7. IRINOTECAN HYDROCHLORIDE [Suspect]
     Active Substance: IRINOTECAN HYDROCHLORIDE
     Indication: Colorectal cancer
     Dosage: 234 MG
     Dates: start: 20210409, end: 20210409
  8. IRINOTECAN HYDROCHLORIDE [Suspect]
     Active Substance: IRINOTECAN HYDROCHLORIDE
     Dosage: 234 MG
     Dates: start: 20210430, end: 20210430
  9. AMLODIPINE BESYLATE [Concomitant]
     Active Substance: AMLODIPINE BESYLATE
     Indication: Hypertension
     Dosage: 5 MG, QD
  10. BENZYDAMINE HYDROCHLORIDE [Concomitant]
     Active Substance: BENZYDAMINE HYDROCHLORIDE
     Dosage: 100 ML
  11. GLYCERIN [Concomitant]
     Active Substance: GLYCERIN
     Dosage: UNK
  12. POTASSIUM CHLORIDE;PROPYLENE GLYCOL;SODIUM BICARBONATE;SODIUM CHLORIDE [Concomitant]
     Dosage: UNK

REACTIONS (1)
  - Ovarian mass [Recovered/Resolved]

NARRATIVE: CASE EVENT DATE: 20210531
